FAERS Safety Report 22286643 (Version 1)
Quarter: 2023Q2

REPORT INFORMATION
  Report Type: Spontaneous
  Country: FR (occurrence: FR)
  Receive Date: 20230505
  Receipt Date: 20230505
  Transmission Date: 20230722
  Serious: Yes (Death, Other)
  Sender: FDA-Public Use
  Company Number: FR-ROCHE-3338314

PATIENT
  Age: 31 Year
  Sex: Female

DRUGS (3)
  1. CIPROFLOXACIN [Suspect]
     Active Substance: CIPROFLOXACIN
     Indication: Pyelonephritis
     Dosage: UNK
     Route: 048
     Dates: start: 20230401, end: 20230402
  2. CEFTRIAXONE [Suspect]
     Active Substance: CEFTRIAXONE
     Indication: Pyelonephritis
     Dosage: UNK
     Route: 030
     Dates: start: 20230329, end: 20230330
  3. BACTRIM [Suspect]
     Active Substance: SULFAMETHOXAZOLE\TRIMETHOPRIM
     Indication: Urinary tract infection
     Dosage: UNK
     Route: 048
     Dates: start: 20230316, end: 20230402

REACTIONS (2)
  - Intracranial pressure increased [Fatal]
  - Rash maculo-papular [Not Recovered/Not Resolved]

NARRATIVE: CASE EVENT DATE: 20230401
